FAERS Safety Report 13650933 (Version 5)
Quarter: 2018Q1

REPORT INFORMATION
  Report Type: Spontaneous
  Country: IT (occurrence: IT)
  Receive Date: 20170614
  Receipt Date: 20180319
  Transmission Date: 20180508
  Serious: Yes (Hospitalization)
  Sender: FDA-Public Use
  Company Number: IT-IBIGEN-2017.02744

PATIENT
  Age: 49 Year
  Sex: Male

DRUGS (4)
  1. ESOMEPRAZOLE [Concomitant]
     Active Substance: ESOMEPRAZOLE
  2. LEVOFLOXACIN. [Suspect]
     Active Substance: LEVOFLOXACIN
     Dosage: 500 MG DAILY
     Route: 048
     Dates: start: 20170509, end: 20170516
  3. CEFIXIME. [Suspect]
     Active Substance: CEFIXIME
     Dosage: .4 G DAILY
     Route: 048
     Dates: start: 20170509, end: 20170516
  4. PIPERACILLIN AND TAZOBACTAM [Suspect]
     Active Substance: PIPERACILLIN SODIUM\TAZOBACTAM SODIUM
     Dosage: 13.5 G DAILY
     Route: 042
     Dates: start: 20170425, end: 20170508

REACTIONS (3)
  - Erythema [Recovered/Resolved]
  - Tendonitis [Recovered/Resolved]
  - Urticaria [Recovered/Resolved]

NARRATIVE: CASE EVENT DATE: 20170511
